FAERS Safety Report 21661749 (Version 1)
Quarter: 2022Q4

REPORT INFORMATION
  Report Type: Spontaneous
  Country: FI (occurrence: FI)
  Receive Date: 20221130
  Receipt Date: 20221130
  Transmission Date: 20230113
  Serious: Yes (Life-Threatening)
  Sender: FDA-Public Use
  Company Number: None

PATIENT
  Age: 61 Year
  Sex: Female

DRUGS (2)
  1. KEYTRUDA [Suspect]
     Active Substance: PEMBROLIZUMAB
     Indication: Squamous cell carcinoma of the vagina
     Dosage: 200 MG,X2
     Route: 042
     Dates: start: 20220630, end: 20220722
  2. TELMISARTAN/HYDROCHLOROTHIAZIDE ORION [Concomitant]
     Indication: Hypertension
     Dosage: 1,DF,DAILY
     Route: 048
     Dates: start: 20201222

REACTIONS (2)
  - Type 1 diabetes mellitus [Recovered/Resolved with Sequelae]
  - Ketoacidosis [Recovered/Resolved with Sequelae]

NARRATIVE: CASE EVENT DATE: 20220812
